FAERS Safety Report 14676825 (Version 1)
Quarter: 2018Q1

REPORT INFORMATION
  Report Type: Spontaneous
  Country: US (occurrence: US)
  Receive Date: 20180324
  Receipt Date: 20180324
  Transmission Date: 20180509
  Serious: Yes (Hospitalization)
  Sender: FDA-Public Use
  Company Number: US-ACCORD-061692

PATIENT
  Age: 45 Year
  Sex: Female
  Weight: 39 kg

DRUGS (24)
  1. DOCUSATE SODIUM. [Concomitant]
     Active Substance: DOCUSATE SODIUM
     Dates: start: 20170829, end: 20170905
  2. MORPHINE [Concomitant]
     Active Substance: MORPHINE
     Dates: start: 20170829, end: 20171002
  3. ONDANSETRON [Concomitant]
     Active Substance: ONDANSETRON
     Dates: start: 20170830, end: 20171012
  4. PROMETHAZINE [Concomitant]
     Active Substance: PROMETHAZINE\PROMETHAZINE HYDROCHLORIDE
     Dates: start: 20170830
  5. SODIUM CHLORIDE. [Concomitant]
     Active Substance: SODIUM CHLORIDE
     Dates: start: 19270913, end: 20171002
  6. ALTEPLASE. [Concomitant]
     Active Substance: ALTEPLASE
     Dates: start: 20171002, end: 20171002
  7. CIPROFLOXACIN/DEXAMETHASONE [Concomitant]
     Dates: start: 20170822, end: 20170902
  8. LEVETIRACETAM. [Concomitant]
     Active Substance: LEVETIRACETAM
     Dates: start: 20170829, end: 20170913
  9. TALAZOPARIB [Suspect]
     Active Substance: TALAZOPARIB
     Indication: ACUTE MYELOID LEUKAEMIA
     Route: 048
     Dates: start: 20170831, end: 20171002
  10. OXYCODONE [Concomitant]
     Active Substance: OXYCODONE
     Dates: start: 20170830
  11. VORICONAZOLE. [Concomitant]
     Active Substance: VORICONAZOLE
     Dates: start: 20170831
  12. MACROGOL [Concomitant]
     Active Substance: POLYETHYLENE GLYCOLS
     Dates: start: 20170902, end: 20170905
  13. LEVOFLOXACIN/LEVOFLOXACIN MESYLATE [Concomitant]
     Dates: start: 20170905
  14. MAGNESIUM OXIDE. [Concomitant]
     Active Substance: MAGNESIUM OXIDE
     Dates: end: 20170828
  15. CALCIUM CARBONATE. [Concomitant]
     Active Substance: CALCIUM CARBONATE
     Dates: end: 20170828
  16. DIPHENHYDRAMINE. [Concomitant]
     Active Substance: DIPHENHYDRAMINE
     Dates: start: 20170901, end: 20170930
  17. VALACICLOVIR [Concomitant]
     Active Substance: VALACYCLOVIR HYDROCHLORIDE
     Dates: start: 2013, end: 20170905
  18. DECITABINE. [Suspect]
     Active Substance: DECITABINE
     Indication: ACUTE MYELOID LEUKAEMIA
     Route: 042
     Dates: start: 20170831, end: 20170904
  19. CEFEPIME [Concomitant]
     Active Substance: CEFEPIME HYDROCHLORIDE
     Dates: start: 20170903, end: 20170905
  20. GLUCONATE SODIUM/MAGNESIUM CHLORIDE ANHYDROUS/POTASSIUM CHLORIDE/SODIUM ACETATE/SODIUM CHLORIDE [Concomitant]
     Dates: start: 20170829, end: 20170904
  21. PARACETAMOL [Concomitant]
     Active Substance: ACETAMINOPHEN
     Dates: start: 20170830, end: 20170921
  22. SENNOSIDE A+B [Concomitant]
     Active Substance: SENNOSIDES A AND B
     Dates: start: 20170629
  23. BISACODYL. [Concomitant]
     Active Substance: BISACODYL
     Dates: start: 20170901, end: 20170905
  24. ZOLPIDEM [Concomitant]
     Active Substance: ZOLPIDEM\ZOLPIDEM TARTRATE
     Dosage: ONGOING
     Dates: start: 2013

REACTIONS (2)
  - Febrile neutropenia [Not Recovered/Not Resolved]
  - Pneumonia [Not Recovered/Not Resolved]
